FAERS Safety Report 13014074 (Version 1)
Quarter: 2016Q4

REPORT INFORMATION
  Report Type: Spontaneous
  Country: DE (occurrence: DE)
  Receive Date: 20161209
  Receipt Date: 20161209
  Transmission Date: 20170207
  Serious: Yes (Other)
  Sender: FDA-Public Use
  Company Number: DE-TEVA-717454GER

PATIENT
  Age: 77 Year
  Sex: Male

DRUGS (2)
  1. CISPLATIN. [Concomitant]
     Active Substance: CISPLATIN
     Indication: MALIGNANT NEOPLASM OF UNKNOWN PRIMARY SITE
     Dosage: 50MG/M2
     Route: 042
  2. GEMCITABINE [Suspect]
     Active Substance: GEMCITABINE\GEMCITABINE HYDROCHLORIDE
     Indication: MALIGNANT NEOPLASM OF UNKNOWN PRIMARY SITE
     Dosage: 1000MG/M2
     Route: 042

REACTIONS (2)
  - Necrosis ischaemic [Recovered/Resolved]
  - Vasculitis [Recovered/Resolved]
